FAERS Safety Report 6253742-X (Version None)
Quarter: 2009Q2

REPORT INFORMATION
  Report Type: 
  Country: None (occurrence: None)
  Receive Date: 20090630
  Receipt Date: 20090615
  Transmission Date: 20091009
  Serious: Yes (Hospitalization)
  Sender: FDA-Public Use
  Company Number: 8047386

PATIENT
  Age: 50 Year
  Sex: Female
  Weight: 88.4 kg

DRUGS (1)
  1. CIMZIA [Suspect]
     Indication: CROHN'S DISEASE
     Dosage: 400 MG SC
     Route: 058
     Dates: start: 20081217

REACTIONS (17)
  - ABDOMINAL PAIN UPPER [None]
  - AGEUSIA [None]
  - ASTHENIA [None]
  - CANDIDIASIS [None]
  - DEHYDRATION [None]
  - DIARRHOEA [None]
  - DRUG EFFECT DECREASED [None]
  - DRY SKIN [None]
  - DYSPHAGIA [None]
  - EATING DISORDER [None]
  - FUNGAL INFECTION [None]
  - MUSCLE SPASMS [None]
  - NAUSEA [None]
  - OROPHARYNGEAL PAIN [None]
  - RASH [None]
  - STOMATITIS [None]
  - WEIGHT DECREASED [None]
